FAERS Safety Report 26113739 (Version 1)
Quarter: 2025Q4

REPORT INFORMATION
  Report Type: Spontaneous
  Country: JP (occurrence: JP)
  Receive Date: 20251202
  Receipt Date: 20251202
  Transmission Date: 20260117
  Serious: Yes (Other)
  Sender: AMGEN
  Company Number: JP-AMGEN-JPNSP2025235070

PATIENT
  Age: 63 Year
  Sex: Female

DRUGS (8)
  1. SOTORASIB [Suspect]
     Active Substance: SOTORASIB
     Indication: Lung carcinoma cell type unspecified stage IV
     Dosage: UNK
     Route: 065
  2. SOTORASIB [Suspect]
     Active Substance: SOTORASIB
     Indication: K-ras gene mutation
  3. CARBOPLATIN [Concomitant]
     Active Substance: CARBOPLATIN
     Indication: Lung carcinoma cell type unspecified stage IV
  4. CARBOPLATIN [Concomitant]
     Active Substance: CARBOPLATIN
     Indication: K-ras gene mutation
  5. PEMBROLIZUMAB [Concomitant]
     Active Substance: PEMBROLIZUMAB
     Indication: Lung carcinoma cell type unspecified stage IV
  6. PEMBROLIZUMAB [Concomitant]
     Active Substance: PEMBROLIZUMAB
     Indication: K-ras gene mutation
  7. ATEZOLIZUMAB [Concomitant]
     Active Substance: ATEZOLIZUMAB
     Indication: Lung carcinoma cell type unspecified stage IV
  8. ATEZOLIZUMAB [Concomitant]
     Active Substance: ATEZOLIZUMAB
     Indication: K-ras gene mutation

REACTIONS (3)
  - Bronchostenosis [Unknown]
  - Respiratory failure [Unknown]
  - Lung disorder [Unknown]
